FAERS Safety Report 4779878-8 (Version None)
Quarter: 2005Q3

REPORT INFORMATION
  Report Type: 
  Country: None (occurrence: None)
  Receive Date: 20050914
  Receipt Date: 20050418
  Transmission Date: 20060218
  Serious: Yes (Hospitalization)
  Sender: FDA-Public Use
  Company Number: 163-20785-05040501

PATIENT
  Age: 61 Year
  Sex: Male
  Weight: 76 kg

DRUGS (7)
  1. THALOMID [Suspect]
     Indication: MULTIPLE MYELOMA
     Dosage: 200 MG, DAILY, ORAL; SEE IMAGE
     Route: 048
     Dates: start: 20021028, end: 20020101
  2. THALOMID [Suspect]
     Indication: MULTIPLE MYELOMA
     Dosage: 200 MG, DAILY, ORAL; SEE IMAGE
     Route: 048
     Dates: start: 20030203, end: 20030101
  3. THALOMID [Suspect]
     Indication: MULTIPLE MYELOMA
     Dosage: 200 MG, DAILY, ORAL; SEE IMAGE
     Route: 048
     Dates: start: 20030415, end: 20030610
  4. THALOMID [Suspect]
     Indication: MULTIPLE MYELOMA
     Dosage: 200 MG, DAILY, ORAL; SEE IMAGE
     Route: 048
     Dates: start: 20021210
  5. DEXAMETHASONE [Suspect]
     Indication: MULTIPLE MYELOMA
     Dosage: 40 MG, QWK, ORAL; SEE IMAGE
     Route: 048
     Dates: start: 20021103, end: 20030105
  6. DEXAMETHASONE [Suspect]
     Indication: MULTIPLE MYELOMA
     Dosage: 40 MG, QWK, ORAL; SEE IMAGE
     Route: 048
     Dates: start: 20030113, end: 20030610
  7. CYCLOPHOSPHAMIDE [Concomitant]

REACTIONS (2)
  - DISEASE PROGRESSION [None]
  - PNEUMONIA STREPTOCOCCAL [None]
